FAERS Safety Report 23773769 (Version 1)
Quarter: 2024Q2

REPORT INFORMATION
  Report Type: Spontaneous
  Country: CZ (occurrence: CZ)
  Receive Date: 20240423
  Receipt Date: 20240423
  Transmission Date: 20240716
  Serious: Yes (Other)
  Sender: FDA-Public Use
  Company Number: None

PATIENT
  Age: 42 Year
  Sex: Female
  Weight: 71 kg

DRUGS (4)
  1. LAMOTRIGINE [Suspect]
     Active Substance: LAMOTRIGINE
     Indication: Depression
     Dosage: 1-0-1, LAMOTRIGINE ACTAVIS
     Route: 048
     Dates: start: 20240305, end: 20240315
  2. ESCITALOPRAM OXALATE [Concomitant]
     Active Substance: ESCITALOPRAM OXALATE
     Indication: Depression
     Dosage: DOSE 1-0-0
     Route: 048
     Dates: start: 202401, end: 20240316
  3. Devenal [Concomitant]
     Indication: Varicose vein
     Dosage: 1-0-1
     Route: 048
     Dates: start: 202303, end: 20240201
  4. TRAZODONE HYDROCHLORIDE [Concomitant]
     Active Substance: TRAZODONE HYDROCHLORIDE
     Indication: Depression
     Dosage: 0-0-0-2/3
     Route: 048
     Dates: start: 202401, end: 20240316

REACTIONS (4)
  - Rash [Recovering/Resolving]
  - Rash [Recovering/Resolving]
  - Pruritus [Recovering/Resolving]
  - Rash [Recovering/Resolving]

NARRATIVE: CASE EVENT DATE: 20240315
